FAERS Safety Report 25155333 (Version 3)
Quarter: 2025Q2

REPORT INFORMATION
  Report Type: Spontaneous
  Country: US (occurrence: US)
  Receive Date: 20250403
  Receipt Date: 20250411
  Transmission Date: 20250716
  Serious: Yes (Life-Threatening, Hospitalization, Other)
  Sender: CHATTEM
  Company Number: US-MLMSERVICE-20250317-PI445579-00145-1

PATIENT
  Age: 43 Year
  Sex: Female

DRUGS (6)
  1. DIPHENHYDRAMINE [Suspect]
     Active Substance: DIPHENHYDRAMINE
     Indication: Insomnia
  2. FENTANYL [Suspect]
     Active Substance: FENTANYL
     Indication: Product used for unknown indication
  3. DULOXETINE HYDROCHLORIDE [Interacting]
     Active Substance: DULOXETINE HYDROCHLORIDE
     Indication: Anxiety
  4. DULOXETINE HYDROCHLORIDE [Interacting]
     Active Substance: DULOXETINE HYDROCHLORIDE
     Indication: Depression
  5. ASENAPINE [Interacting]
     Active Substance: ASENAPINE
     Indication: Mood swings
  6. TRAZODONE HYDROCHLORIDE [Interacting]
     Active Substance: TRAZODONE HYDROCHLORIDE
     Indication: Insomnia

REACTIONS (12)
  - Serotonin syndrome [Recovering/Resolving]
  - Drug interaction [Recovering/Resolving]
  - Intentional product misuse [Recovering/Resolving]
  - Muscle rigidity [Recovering/Resolving]
  - Muscle tightness [Recovering/Resolving]
  - Tachycardia [Recovering/Resolving]
  - Leukocytosis [Recovering/Resolving]
  - Respiratory distress [Recovering/Resolving]
  - Lactic acidosis [Recovering/Resolving]
  - Autonomic nervous system imbalance [Recovering/Resolving]
  - Psychomotor hyperactivity [Recovering/Resolving]
  - Mental status changes [Recovering/Resolving]
